FAERS Safety Report 5302081-X (Version None)
Quarter: 2007Q2

REPORT INFORMATION
  Report Type: 
  Country: None (occurrence: None)
  Receive Date: 20070419
  Receipt Date: 20070417
  Transmission Date: 20071010
  Serious: Yes (Other)
  Sender: FDA-Public Use
  Company Number: US-GLAXOSMITHKLINE-A0647640A

PATIENT
  Age: 24 Year
  Sex: Male

DRUGS (9)
  1. PAROXETINE [Suspect]
     Indication: DEPRESSION
     Dosage: 15MG PER DAY
     Route: 048
  2. PROZAC [Concomitant]
  3. UNSPECIFIED MEDICATION [Concomitant]
  4. FLORINEF [Concomitant]
  5. REGLAN [Concomitant]
  6. KLONOPIN [Concomitant]
  7. CATAPRES [Concomitant]
  8. PREVACID [Concomitant]
  9. CALCIUM [Concomitant]

REACTIONS (1)
  - HYPERTENSIVE CRISIS [None]
